FAERS Safety Report 6911544-2 (Version None)
Quarter: 2010Q3

REPORT INFORMATION
  Report Type: 
  Country: None (occurrence: None)
  Receive Date: 20100806
  Receipt Date: 20100721
  Transmission Date: 20110219
  Serious: Yes (Hospitalization, Other)
  Sender: FDA-Public Use
  Company Number: US-BAYER-201029560NA

PATIENT
  Age: 19 Year
  Sex: Female
  Weight: 57 kg

DRUGS (6)
  1. YAZ [Suspect]
     Dates: start: 20070601, end: 20090901
  2. LYRICA [Concomitant]
  3. VERAPAMIL [Concomitant]
  4. ELAVIL [Concomitant]
  5. AMBIEN [Concomitant]
  6. ACETAMINOPHEN [Concomitant]

REACTIONS (3)
  - ABDOMINAL PAIN [None]
  - CHOLECYSTITIS [None]
  - PANCREATITIS [None]
